FAERS Safety Report 15042623 (Version 1)
Quarter: 2018Q2

REPORT INFORMATION
  Report Type: Spontaneous
  Country: DE (occurrence: DE)
  Receive Date: 20180621
  Receipt Date: 20180621
  Transmission Date: 20180711
  Serious: Yes (Hospitalization, Disabling, Other)
  Sender: FDA-Public Use
  Company Number: DE-ELI_LILLY_AND_COMPANY-DE201806005060

PATIENT
  Age: 68 Year
  Sex: Female

DRUGS (1)
  1. INSULIN HUMAN [Suspect]
     Active Substance: INSULIN HUMAN
     Indication: COMPLETED SUICIDE
     Dosage: UNK UNK, UNKNOWN
     Route: 042

REACTIONS (18)
  - Brain injury [Not Recovered/Not Resolved]
  - Cerebral infarction [Not Recovered/Not Resolved]
  - Pneumonia [Recovered/Resolved]
  - Aphasia [Not Recovered/Not Resolved]
  - Intentional overdose [Unknown]
  - Respiratory rate decreased [Recovered/Resolved]
  - Aspiration [Recovered/Resolved]
  - Hypoglycaemia [Recovered/Resolved with Sequelae]
  - Off label use [Unknown]
  - Unresponsive to stimuli [Recovered/Resolved]
  - Blood pressure increased [Recovered/Resolved with Sequelae]
  - Sinus tachycardia [Recovered/Resolved with Sequelae]
  - Hyperhidrosis [Recovered/Resolved with Sequelae]
  - Dysphagia [Not Recovered/Not Resolved]
  - Oxygen saturation decreased [Recovered/Resolved]
  - Overdose [Unknown]
  - Rales [Recovered/Resolved]
  - Coma [Recovered/Resolved]
